FAERS Safety Report 24622283 (Version 1)
Quarter: 2024Q4

REPORT INFORMATION
  Report Type: Spontaneous
  Country: US (occurrence: US)
  Receive Date: 20241114
  Receipt Date: 20241114
  Transmission Date: 20250115
  Serious: Yes (Other)
  Sender: APOTEX
  Company Number: US-APOTEX-2024AP017534

PATIENT
  Age: 72 Year
  Sex: Male

DRUGS (5)
  1. BUDESONIDE [Suspect]
     Active Substance: BUDESONIDE
     Indication: Asthma-chronic obstructive pulmonary disease overlap syndrome
     Dosage: UNK
     Dates: start: 2016
  2. MOMETASONE [Suspect]
     Active Substance: MOMETASONE
     Indication: Asthma-chronic obstructive pulmonary disease overlap syndrome
     Dosage: UNK
     Dates: start: 2016
  3. FLUTICASONE [Suspect]
     Active Substance: FLUTICASONE
     Indication: Asthma-chronic obstructive pulmonary disease overlap syndrome
     Dosage: UNK
     Dates: start: 2016
  4. FLUTICASONE PROPIONATE\SALMETEROL XINAFOATE [Suspect]
     Active Substance: FLUTICASONE PROPIONATE\SALMETEROL XINAFOATE
     Indication: Asthma-chronic obstructive pulmonary disease overlap syndrome
     Dosage: 500/50 MICROGRAM, BID
     Route: 065
  5. FLUTICASONE PROPIONATE\SALMETEROL XINAFOATE [Suspect]
     Active Substance: FLUTICASONE PROPIONATE\SALMETEROL XINAFOATE
     Dosage: 250/50 MICROGRAM, BID
     Route: 065

REACTIONS (1)
  - Osteonecrosis [Recovering/Resolving]
